FAERS Safety Report 12997612 (Version 1)
Quarter: 2016Q4

REPORT INFORMATION
  Report Type: Spontaneous
  Country: GB (occurrence: GB)
  Receive Date: 20161205
  Receipt Date: 20161205
  Transmission Date: 20170207
  Serious: Yes (Other)
  Sender: FDA-Public Use
  Company Number: GB-SYNTHON BV-NL01PV16_42091

PATIENT
  Sex: Male
  Weight: 3.49 kg

DRUGS (5)
  1. ZOLPIDEM [Suspect]
     Active Substance: ZOLPIDEM\ZOLPIDEM TARTRATE
     Indication: INSOMNIA
     Dosage: [10 MG NOCTE, DAILY]
     Route: 064
  2. CITALOPRAM [Suspect]
     Active Substance: CITALOPRAM HYDROBROMIDE
     Indication: DEPRESSION
     Dosage: [20 MG, DAILY, OM; EVERY MORNING, COMMENCED IN THE THIRD TRIMESTER]
     Route: 064
  3. CHLORPROMAZINE. [Suspect]
     Active Substance: CHLORPROMAZINE
     Indication: AGITATION
     Dosage: [25 MG, TID, COMMENCED IN THIRD TRIMESTER]
     Route: 064
  4. TRAMADOL. [Suspect]
     Active Substance: TRAMADOL
     Dosage: [UNQUANTIFIED ILLICIT TRAMADOL USE]
     Route: 064
  5. CODEINE                            /00012602/ [Suspect]
     Active Substance: CODEINE PHOSPHATE
     Dosage: [60 MG, TID, MAINTAINED ON 180 MG CODEINE DAILY]
     Route: 064

REACTIONS (7)
  - Irritability [Unknown]
  - Drug withdrawal syndrome neonatal [Unknown]
  - Hypoglycaemia [Unknown]
  - Vomiting [Unknown]
  - Foetal exposure during pregnancy [Unknown]
  - Respiratory distress [Unknown]
  - Poor feeding infant [Unknown]
